FAERS Safety Report 4592337-0 (Version None)
Quarter: 2005Q1

REPORT INFORMATION
  Report Type: 
  Country: None (occurrence: None)
  Receive Date: 20050228
  Receipt Date: 20041209
  Transmission Date: 20050727
  Serious: No
  Sender: FDA-Public Use
  Company Number: US-BRISTOL-MYERS SQUIBB COMPANY-12792099

PATIENT
  Age: 48 Year
  Sex: Female
  Weight: 63 kg

DRUGS (4)
  1. ABILIFY [Suspect]
     Indication: BIPOLAR DISORDER
     Route: 048
  2. ATIVAN [Concomitant]
  3. BENADRYL [Concomitant]
  4. LEVOXYL [Concomitant]

REACTIONS (1)
  - DYSPNOEA [None]
